FAERS Safety Report 18933001 (Version 1)
Quarter: 2021Q1

REPORT INFORMATION
  Report Type: Report from Study
  Country: DE (occurrence: DE)
  Receive Date: 20210224
  Receipt Date: 20210224
  Transmission Date: 20210420
  Serious: Yes (Death)
  Sender: FDA-Public Use
  Company Number: DE-PFIZER INC-2021179057

PATIENT
  Age: 15 Year
  Sex: Male

DRUGS (6)
  1. VINCRISTINE SULFATE. [Suspect]
     Active Substance: VINCRISTINE SULFATE
     Indication: CNS GERMINOMA
     Dosage: UNK, CYCLIC (ONE COURSE)
  2. ETOPOSIDE. [Suspect]
     Active Substance: ETOPOSIDE
     Indication: CNS GERMINOMA
     Dosage: UNK, CYCLIC (THREE COURSES)
  3. CISPLATIN. [Suspect]
     Active Substance: CISPLATIN
     Indication: CNS GERMINOMA
     Dosage: UNK , CYCLIC (THREE COURSES)
  4. IFOSFAMIDE. [Suspect]
     Active Substance: IFOSFAMIDE
     Indication: CNS GERMINOMA
     Dosage: UNK, CYCLIC (ONE COURSE)
  5. CISPLATIN. [Suspect]
     Active Substance: CISPLATIN
     Dosage: UNK, CYCLIC (1 COURSE)
  6. BLEOMYCIN SULFATE [Suspect]
     Active Substance: BLEOMYCIN SULFATE
     Indication: CNS GERMINOMA
     Dosage: UNK , CYCLIC (3 COURSES)

REACTIONS (1)
  - Death [Fatal]
